FAERS Safety Report 5679526-9 (Version None)
Quarter: 2008Q1

REPORT INFORMATION
  Report Type: 
  Country: None (occurrence: None)
  Receive Date: 20080325
  Receipt Date: 20080228
  Transmission Date: 20080703
  Serious: No
  Sender: FDA-Public Use
  Company Number: US-BOEHRINGER INGELHEIM GMBH, GERMANY-2008-BP-01273BP

PATIENT
  Sex: Female

DRUGS (13)
  1. SPIRIVA [Suspect]
     Indication: ASTHMA
     Route: 055
     Dates: start: 20070901
  2. FLOVENT [Concomitant]
     Indication: ASTHMA
  3. ZYRTEC [Concomitant]
     Indication: ASTHMA
  4. ZYRTEC [Concomitant]
     Indication: HYPERSENSITIVITY
  5. PROTONIX [Concomitant]
     Indication: GASTROOESOPHAGEAL REFLUX DISEASE
  6. FORADIL [Concomitant]
     Indication: ASTHMA
  7. GUIAFED [Concomitant]
     Indication: ASTHMA
  8. SINGULAIR [Concomitant]
     Indication: ASTHMA
  9. ASPIRIN [Concomitant]
  10. NASONEX [Concomitant]
     Indication: ASTHMA
  11. SONATA [Concomitant]
     Indication: INSOMNIA
  12. XANAX [Concomitant]
     Indication: ANXIETY
  13. ASTELIN [Concomitant]

REACTIONS (3)
  - DYSPNOEA [None]
  - EXERCISE TOLERANCE DECREASED [None]
  - SENSATION OF FOREIGN BODY [None]
